FAERS Safety Report 6272251-5 (Version None)
Quarter: 2009Q3

REPORT INFORMATION
  Report Type: 
  Country: None (occurrence: None)
  Receive Date: 20090717
  Receipt Date: 20090713
  Transmission Date: 20100115
  Serious: Yes (Other)
  Sender: FDA-Public Use
  Company Number: IT-JNJFOC-20090703456

PATIENT
  Age: 80 Year
  Sex: Male

DRUGS (5)
  1. GALANTAMINE HYDROBROMIDE [Suspect]
     Indication: DRUG USE FOR UNKNOWN INDICATION
     Route: 065
  2. SUGUAN [Concomitant]
     Indication: DIABETES MELLITUS
     Route: 065
  3. ASPIRIN [Concomitant]
     Indication: CARDIAC DISORDER
     Route: 065
  4. CORTISONE [Concomitant]
     Indication: DRUG USE FOR UNKNOWN INDICATION
     Route: 065
  5. SERTRALINE [Concomitant]
     Indication: DRUG USE FOR UNKNOWN INDICATION
     Route: 065

REACTIONS (1)
  - INTERSTITIAL LUNG DISEASE [None]
